FAERS Safety Report 18165605 (Version 4)
Quarter: 2021Q1

REPORT INFORMATION
  Report Type: Spontaneous
  Country: BE (occurrence: BE)
  Receive Date: 20200819
  Receipt Date: 20210105
  Transmission Date: 20210419
  Serious: Yes (Life-Threatening, Hospitalization)
  Sender: FDA-Public Use
  Company Number: BE-BEH-2020121091

PATIENT
  Age: 64 Year
  Sex: Male
  Weight: 62 kg

DRUGS (15)
  1. LINISOL [Concomitant]
     Active Substance: LIDOCAINE HYDROCHLORIDE
     Route: 065
  2. FOLAVIT [Concomitant]
     Active Substance: FOLIC ACID
     Route: 065
  3. ALBUREX [Suspect]
     Active Substance: ALBUMIN HUMAN
     Dosage: 2 DOSAGE FORM, TOT
     Route: 042
     Dates: start: 20200724, end: 20200724
  4. BEFACT [CYANOCOBALAMIN;PYRIDOXINE;THIAMINE] [Concomitant]
     Route: 065
  5. ISOBETADINE [Concomitant]
     Dosage: 10 MILLILITER
     Route: 003
  6. ALBUREX [Suspect]
     Active Substance: ALBUMIN HUMAN
     Dosage: UNK
     Route: 065
     Dates: start: 20200603
  7. EMCONCOR [Concomitant]
     Active Substance: BISOPROLOL FUMARATE
     Route: 065
  8. D?CURE [Concomitant]
     Active Substance: CHOLECALCIFEROL
     Route: 065
  9. ALBUREX [Suspect]
     Active Substance: ALBUMIN HUMAN
     Indication: FLUID REPLACEMENT
     Dosage: UNK
     Route: 065
     Dates: start: 20191113
  10. ALBUREX [Suspect]
     Active Substance: ALBUMIN HUMAN
     Dosage: 2 DOSAGE FORM, TOT
     Route: 042
     Dates: start: 20200724, end: 20200724
  11. CHLORHEXIDINE [Concomitant]
     Active Substance: CHLORHEXIDINE
  12. OMEPRAZOLE. [Concomitant]
     Active Substance: OMEPRAZOLE
     Route: 065
  13. FOLATE [Concomitant]
     Active Substance: FOLATE SODIUM
     Route: 065
  14. LIDOCAINE. [Concomitant]
     Active Substance: LIDOCAINE
     Route: 065
  15. NORFLOXACIN [Concomitant]
     Active Substance: NORFLOXACIN
     Route: 065

REACTIONS (7)
  - Urticaria [Recovered/Resolved]
  - Flushing [Recovered/Resolved]
  - Dyspnoea [Recovered/Resolved]
  - Hypotension [Recovered/Resolved]
  - Pruritus [Recovered/Resolved]
  - Anaphylactic shock [Recovered/Resolved]
  - Oxygen saturation decreased [Recovered/Resolved]

NARRATIVE: CASE EVENT DATE: 20200724
